FAERS Safety Report 5780047-3 (Version None)
Quarter: 2008Q2

REPORT INFORMATION
  Report Type: 
  Country: None (occurrence: None)
  Receive Date: 20080620
  Receipt Date: 20080611
  Transmission Date: 20081010
  Serious: Yes (Other)
  Sender: FDA-Public Use
  Company Number: US-ROCHE-550044

PATIENT
  Sex: Male

DRUGS (3)
  1. PEGASYS [Suspect]
     Indication: HEPATITIS C
     Route: 065
     Dates: start: 20080115
  2. RIBAVIRIN [Suspect]
     Indication: HEPATITIS C
     Route: 065
     Dates: start: 20080115
  3. TRAZODONE HYDROCHLORIDE [Suspect]
     Indication: INSOMNIA
     Route: 048
     Dates: start: 20070501

REACTIONS (4)
  - DEPRESSION [None]
  - POISONING [None]
  - SUBSTANCE ABUSE [None]
  - SUICIDE ATTEMPT [None]
